FAERS Safety Report 5822478-9 (Version None)
Quarter: 2008Q3

REPORT INFORMATION
  Report Type: 
  Country: None (occurrence: None)
  Receive Date: 20080725
  Receipt Date: 20080717
  Transmission Date: 20090109
  Serious: Yes (Other)
  Sender: FDA-Public Use
  Company Number: US-AMGEN-KDL294320

PATIENT
  Sex: Female
  Weight: 42.7 kg

DRUGS (17)
  1. ARANESP [Suspect]
     Indication: RENAL FAILURE CHRONIC
     Route: 058
     Dates: start: 20070702, end: 20080714
  2. ADVAIR DISKUS 100/50 [Concomitant]
  3. COMBIVENT [Concomitant]
  4. BUMEX [Concomitant]
  5. COREG [Concomitant]
  6. FOLABEE [Concomitant]
  7. CENTRUM [Concomitant]
  8. XOPENEX [Concomitant]
  9. ZEMPLAR [Concomitant]
  10. COZAAR [Concomitant]
  11. UNSPECIFIED NUTRITIONAL SUPPLEMENT [Concomitant]
  12. FORTEO [Concomitant]
  13. ALLOPURINOL [Concomitant]
  14. NEXIUM [Concomitant]
  15. PLAVIX [Concomitant]
  16. ASPIRIN [Concomitant]
  17. AXID [Concomitant]

REACTIONS (3)
  - IRON DEFICIENCY [None]
  - MYELODYSPLASTIC SYNDROME [None]
  - THERAPEUTIC RESPONSE DECREASED [None]
